FAERS Safety Report 5084921-5 (Version None)
Quarter: 2006Q3

REPORT INFORMATION
  Report Type: 
  Country: None (occurrence: None)
  Receive Date: 20060821
  Receipt Date: 20041227
  Transmission Date: 20061208
  Serious: Yes (Hospitalization)
  Sender: FDA-Public Use
  Company Number: US-2004-BP-14318BP

PATIENT
  Sex: Male
  Weight: 160 kg

DRUGS (5)
  1. MICARDIS [Suspect]
     Indication: DIABETIC NEPHROPATHY
     Route: 048
     Dates: start: 20040324, end: 20041222
  2. COREG [Concomitant]
     Indication: HYPERTENSION
     Route: 048
     Dates: start: 20040613
  3. DILTIAZEM HCL [Concomitant]
     Indication: HYPERTENSION
     Route: 048
     Dates: start: 20040613
  4. LASIX [Concomitant]
     Indication: OEDEMA
     Route: 048
     Dates: start: 20040613
  5. CARDURA [Concomitant]
     Route: 048

REACTIONS (4)
  - GENERALISED OEDEMA [None]
  - HYPERKALAEMIA [None]
  - NASOPHARYNGITIS [None]
  - RENAL FAILURE [None]
